FAERS Safety Report 6285972-5 (Version None)
Quarter: 2009Q3

REPORT INFORMATION
  Report Type: 
  Country: None (occurrence: None)
  Receive Date: 20090728
  Receipt Date: 20090720
  Transmission Date: 20100115
  Serious: No
  Sender: FDA-Public Use
  Company Number: US-JNJFOC-20090707003

PATIENT
  Sex: Male
  Weight: 79.38 kg

DRUGS (10)
  1. DURAGESIC-100 [Suspect]
     Route: 062
  2. DURAGESIC-100 [Suspect]
     Route: 062
  3. DURAGESIC-100 [Suspect]
     Route: 062
  4. DURAGESIC-100 [Suspect]
     Route: 062
  5. DURAGESIC-100 [Suspect]
     Indication: PAIN
     Route: 062
  6. LOPID [Concomitant]
     Route: 065
  7. ZOLOFT [Concomitant]
     Route: 065
  8. CELEBREX [Concomitant]
     Route: 065
  9. XANAX [Concomitant]
     Route: 065
  10. LUNESTA [Concomitant]
     Route: 065

REACTIONS (6)
  - APPLICATION SITE BURN [None]
  - APPLICATION SITE RASH [None]
  - APPLICATION SITE REACTION [None]
  - DERMATITIS CONTACT [None]
  - INAPPROPRIATE SCHEDULE OF DRUG ADMINISTRATION [None]
  - RASH GENERALISED [None]
